FAERS Safety Report 7865646-7 (Version None)
Quarter: 2011Q4

REPORT INFORMATION
  Report Type: 
  Country: None (occurrence: None)
  Receive Date: 20111028
  Receipt Date: 20110128
  Transmission Date: 20120403
  Serious: No
  Sender: FDA-Public Use
  Company Number: US-GLAXOSMITHKLINE-A0910209A

PATIENT
  Age: 70 Year
  Sex: Male

DRUGS (4)
  1. RISPERIDONE [Concomitant]
  2. PROAIR HFA [Concomitant]
  3. BENZTROPINE MESYLATE [Concomitant]
  4. ADVAIR DISKUS 100/50 [Suspect]
     Indication: ASTHMA
     Dosage: 2PUFF TWICE PER DAY
     Route: 055

REACTIONS (2)
  - WHEEZING [None]
  - HEADACHE [None]
